FAERS Safety Report 16710083 (Version 1)
Quarter: 2019Q3

REPORT INFORMATION
  Report Type: Spontaneous
  Country: US (occurrence: US)
  Receive Date: 20190816
  Receipt Date: 20190816
  Transmission Date: 20191004
  Serious: Yes (Hospitalization, Other)
  Sender: FDA-Public Use
  Company Number: US-ALVOGEN-2019-ALVOGEN-100950

PATIENT
  Age: 46 Year
  Sex: Male

DRUGS (5)
  1. TOLVAPTAN [Suspect]
     Active Substance: TOLVAPTAN
     Indication: CONGENITAL CYSTIC KIDNEY DISEASE
     Dosage: UPON WAKING
     Route: 048
     Dates: start: 20180831
  2. TOLVAPTAN [Suspect]
     Active Substance: TOLVAPTAN
     Indication: CONGENITAL CYSTIC KIDNEY DISEASE
     Dosage: 8 HOURS LATER
     Route: 048
  3. LISINOPRIL. [Suspect]
     Active Substance: LISINOPRIL
     Indication: PRODUCT USED FOR UNKNOWN INDICATION
  4. TOLVAPTAN [Suspect]
     Active Substance: TOLVAPTAN
     Indication: CONGENITAL CYSTIC KIDNEY DISEASE
     Dosage: AFTER 8 HOURS
     Route: 048
     Dates: start: 20180831
  5. TOLVAPTAN [Suspect]
     Active Substance: TOLVAPTAN
     Indication: CONGENITAL CYSTIC KIDNEY DISEASE
     Dosage: UPON WAKING
     Route: 048

REACTIONS (5)
  - Hyperkalaemia [Not Recovered/Not Resolved]
  - Fatigue [Not Recovered/Not Resolved]
  - Infection [Unknown]
  - Cyst rupture [Unknown]
  - Headache [Not Recovered/Not Resolved]

NARRATIVE: CASE EVENT DATE: 20190603
